FAERS Safety Report 25955987 (Version 1)
Quarter: 2025Q4

REPORT INFORMATION
  Report Type: Spontaneous
  Country: US (occurrence: US)
  Receive Date: 20251024
  Receipt Date: 20251024
  Transmission Date: 20260117
  Serious: No
  Sender: TOLMAR
  Company Number: US-Tolmar-TLM-2025-07825

PATIENT
  Sex: Female

DRUGS (3)
  1. ELIGARD [Suspect]
     Active Substance: LEUPROLIDE ACETATE
     Indication: Breast cancer
     Dosage: EXPIRATION DATES: AUG-2026; AUG-2026; 31-AUG-2026?SERIAL: 1040609333073.?GTIN: 00362935756804
  2. ELIGARD [Suspect]
     Active Substance: LEUPROLIDE ACETATE
     Dosage: REPLACEMENT DOSE
  3. DEVICE [Suspect]
     Active Substance: DEVICE
     Indication: Breast cancer
     Dosage: EXPIRATION DATES: AUG-2026; AUG-2026; 31-AUG-2026?SERIAL: 1040609333073.?GTIN: 00362935756804

REACTIONS (3)
  - Intercepted product preparation error [Unknown]
  - Device occlusion [Unknown]
  - Off label use [Not Recovered/Not Resolved]
